FAERS Safety Report 23647937 (Version 1)
Quarter: 2024Q1

REPORT INFORMATION
  Report Type: Spontaneous
  Country: DE (occurrence: DE)
  Receive Date: 20240319
  Receipt Date: 20240319
  Transmission Date: 20240410
  Serious: Yes (Other)
  Sender: FDA-Public Use
  Company Number: DE-SA-2020SA079462

PATIENT
  Age: 40 Year
  Sex: Male

DRUGS (9)
  1. DUPIXENT [Suspect]
     Active Substance: DUPILUMAB
     Indication: Dermatitis atopic
     Dosage: 600 MG, 1X (LOADING DOSE)
     Route: 058
     Dates: start: 201907, end: 2019
  2. DUPIXENT [Suspect]
     Active Substance: DUPILUMAB
     Dosage: 300 MG, QOW
     Route: 058
     Dates: start: 201908
  3. PREDNISOLONE [Suspect]
     Active Substance: PREDNISOLONE
     Indication: Dermatitis atopic
     Dosage: 50 MG, Q3D (INTERMITTENT)
     Route: 048
  4. PREDNISOLONE [Suspect]
     Active Substance: PREDNISOLONE
     Indication: Psoriasis
     Dosage: UNK, URGENT BOLUS STEROID THERAPY (GRADUAL DOWNWARD TAPERING OF THE DOSE EVERY 2 DAYS)
  5. PREDNISOLONE [Suspect]
     Active Substance: PREDNISOLONE
     Dosage: 25 MG, QD
  6. PREDNISOLONE [Suspect]
     Active Substance: PREDNISOLONE
     Dosage: 20 MG, QD
  7. PREDNISOLONE [Suspect]
     Active Substance: PREDNISOLONE
     Dosage: 15 MG, QD
  8. PREDNISOLONE [Suspect]
     Active Substance: PREDNISOLONE
     Dosage: 10 MG, QD
  9. PREDNISOLONE [Suspect]
     Active Substance: PREDNISOLONE
     Dosage: 5 MG, QD

REACTIONS (16)
  - Steroid withdrawal syndrome [Unknown]
  - Treatment noncompliance [Unknown]
  - Psoriasis [Recovering/Resolving]
  - Erythema [Recovering/Resolving]
  - Skin plaque [Recovering/Resolving]
  - Skin exfoliation [Recovering/Resolving]
  - Leukocytosis [Recovering/Resolving]
  - Neutrophilia [Recovering/Resolving]
  - Eosinophilia [Recovering/Resolving]
  - Skin lesion [Recovering/Resolving]
  - Acanthosis [Recovering/Resolving]
  - Papilloma [Recovering/Resolving]
  - Parakeratosis [Recovering/Resolving]
  - Oedema [Recovering/Resolving]
  - Lymphocytic infiltration [Recovering/Resolving]
  - Abnormal palmar/plantar creases [Recovering/Resolving]

NARRATIVE: CASE EVENT DATE: 20190701
